FAERS Safety Report 5427610-7 (Version None)
Quarter: 2007Q3

REPORT INFORMATION
  Report Type: 
  Country: None (occurrence: None)
  Receive Date: 20070828
  Receipt Date: 20070813
  Transmission Date: 20080115
  Serious: Yes (Hospitalization)
  Sender: FDA-Public Use
  Company Number: FR-ELI_LILLY_AND_COMPANY-FR200707006325

PATIENT
  Age: 72 Year
  Sex: Female

DRUGS (8)
  1. EVISTA [Suspect]
     Indication: OSTEOPOROSIS
     Dosage: 60 MG, DAILY (1/D)
     Route: 048
     Dates: end: 20070701
  2. PRAVASTATIN [Concomitant]
     Dosage: 1 D/F, DAILY (1/D)
  3. ALLOPURINOL [Concomitant]
     Dosage: 1 D/F, DAILY (1/D)
  4. SERC /00141802/ [Concomitant]
     Dosage: 3 D/F, DAILY (1/D)
  5. ZANIDIP [Concomitant]
     Dosage: 1 D/F, DAILY (1/D)
  6. DI-ANTALVIC [Concomitant]
     Dosage: UNK, AS NEEDED
  7. NIFLUGEL [Concomitant]
     Dosage: 2 UNK, DAILY (1/D)
  8. CALCIDOSE VITAMINE D [Concomitant]
     Dosage: 1 D/F, DAILY (1/D)

REACTIONS (2)
  - CEREBROVASCULAR ACCIDENT [None]
  - INJECTION SITE INFECTION [None]
